FAERS Safety Report 7882642-4 (Version None)
Quarter: 2011Q4

REPORT INFORMATION
  Report Type: 
  Country: None (occurrence: None)
  Receive Date: 20111101
  Receipt Date: 20110617
  Transmission Date: 20120403
  Serious: No
  Sender: FDA-Public Use
  Company Number: US-AMGEN-USASP2011031264

PATIENT
  Sex: Female

DRUGS (2)
  1. ENBREL [Suspect]
     Indication: RHEUMATOID ARTHRITIS
     Dosage: 50 MG, QWK
     Dates: start: 20110523
  2. METHOTREXATE [Concomitant]
     Dosage: 5 MG, UNK
     Dates: start: 20100503

REACTIONS (7)
  - RASH ERYTHEMATOUS [None]
  - RASH PRURITIC [None]
  - ARTHRALGIA [None]
  - GAIT DISTURBANCE [None]
  - ABDOMINAL DISCOMFORT [None]
  - JOINT SWELLING [None]
  - DIARRHOEA [None]
